FAERS Safety Report 17111390 (Version 2)
Quarter: 2019Q4

REPORT INFORMATION
  Report Type: Spontaneous
  Country: JP (occurrence: JP)
  Receive Date: 20191204
  Receipt Date: 20191223
  Transmission Date: 20200122
  Serious: Yes (Hospitalization)
  Sender: FDA-Public Use
  Company Number: JP-JNJFOC-20191136859

PATIENT
  Age: 45 Year
  Sex: Male

DRUGS (5)
  1. MEILAX [Concomitant]
     Active Substance: ETHYL LOFLAZEPATE
     Indication: PRODUCT USED FOR UNKNOWN INDICATION
     Dosage: ETHYL LOFLAZEPATE
     Route: 048
  2. ARTANE [Concomitant]
     Active Substance: TRIHEXYPHENIDYL HYDROCHLORIDE
     Dosage: TRIHEXYPHENIDYL HYDROCHLORIDE
     Route: 048
  3. XEPLION [Suspect]
     Active Substance: PALIPERIDONE PALMITATE
     Indication: SCHIZOPHRENIA
     Dosage: PALIPERIDONE PALMITATE:25MG
     Route: 030
     Dates: start: 20191119
  4. BENZALIN                           /00036201/ [Concomitant]
     Active Substance: NITRAZEPAM
     Indication: PRODUCT USED FOR UNKNOWN INDICATION
     Dosage: NITRAZEPAM
     Route: 048
  5. BROTIZOLAM [Concomitant]
     Active Substance: BROTIZOLAM
     Indication: PRODUCT USED FOR UNKNOWN INDICATION
     Route: 048

REACTIONS (6)
  - Cervical vertebral fracture [Recovering/Resolving]
  - Suicide attempt [Recovering/Resolving]
  - Limb fracture [Recovering/Resolving]
  - Sternal fracture [Recovering/Resolving]
  - Ligament rupture [Recovering/Resolving]
  - Extradural haematoma [Recovering/Resolving]

NARRATIVE: CASE EVENT DATE: 20191119
